FAERS Safety Report 23986608 (Version 1)
Quarter: 2024Q2

REPORT INFORMATION
  Report Type: Spontaneous
  Country: CN (occurrence: CN)
  Receive Date: 20240618
  Receipt Date: 20240618
  Transmission Date: 20240716
  Serious: Yes (Other)
  Sender: FDA-Public Use
  Company Number: CN-ORGANON-O2406CHN001512

PATIENT
  Age: 46 Year
  Sex: Female
  Weight: 53.6 kg

DRUGS (1)
  1. FOSAMAX [Suspect]
     Active Substance: ALENDRONATE SODIUM
     Indication: Osteoporosis
     Dosage: ORAL, 1 TABLET, QW
     Route: 048
     Dates: start: 20240607, end: 20240614

REACTIONS (7)
  - Presyncope [Unknown]
  - Blindness transient [Recovered/Resolved]
  - Dizziness [Recovered/Resolved]
  - Glare [Recovered/Resolved]
  - Auditory disorder [Recovered/Resolved]
  - Cold sweat [Unknown]
  - Abdominal pain [Not Recovered/Not Resolved]

NARRATIVE: CASE EVENT DATE: 20240614
